FAERS Safety Report 18165678 (Version 1)
Quarter: 2020Q3

REPORT INFORMATION
  Report Type: Spontaneous
  Country: JP (occurrence: JP)
  Receive Date: 20200818
  Receipt Date: 20200818
  Transmission Date: 20201103
  Serious: Yes (Other)
  Sender: FDA-Public Use
  Company Number: JP-PURDUE-USA-2020-0162523

PATIENT
  Sex: Female

DRUGS (2)
  1. NORSPAN [Suspect]
     Active Substance: BUPRENORPHINE
     Indication: PRODUCT USED FOR UNKNOWN INDICATION
     Dosage: 10 MCG, Q1H [STRENGTH 10 MG]
     Route: 062
  2. NORSPAN [Suspect]
     Active Substance: BUPRENORPHINE
     Dosage: 10 MCG, Q1H [STRENGTH 10 MG]
     Route: 062

REACTIONS (1)
  - Cerebral infarction [Unknown]
